FAERS Safety Report 9181052 (Version 1)
Quarter: 2013Q1

REPORT INFORMATION
  Report Type: Spontaneous
  Country: AU (occurrence: AU)
  Receive Date: 20130322
  Receipt Date: 20130322
  Transmission Date: 20140127
  Serious: Yes (Other)
  Sender: FDA-Public Use
  Company Number: PHHY2013AU027583

PATIENT
  Sex: Female

DRUGS (6)
  1. ACLASTA [Suspect]
     Dosage: UNK
     Route: 042
  2. CALTRATE [Concomitant]
  3. DIPROSONE [Concomitant]
  4. EPIPEN [Concomitant]
  5. PREDNISOLONE [Concomitant]
  6. OSTEOVIT D [Concomitant]

REACTIONS (2)
  - Supraventricular tachycardia [Unknown]
  - Influenza like illness [Unknown]
